FAERS Safety Report 5093474-7 (Version None)
Quarter: 2006Q3

REPORT INFORMATION
  Report Type: 
  Country: None (occurrence: None)
  Receive Date: 20060829
  Receipt Date: 20060810
  Transmission Date: 20061208
  Serious: Yes (Hospitalization, Other)
  Sender: FDA-Public Use
  Company Number: US200608002437

PATIENT
  Age: 57 Year
  Sex: Female

DRUGS (2)
  1. FORTEO [Suspect]
     Indication: OSTEOPOROSIS
     Dates: start: 20050317, end: 20060709
  2. FORTEO [Concomitant]

REACTIONS (11)
  - CEREBRAL HAEMORRHAGE [None]
  - CIRCULATORY COLLAPSE [None]
  - FACIAL BONES FRACTURE [None]
  - FALL [None]
  - HEAD INJURY [None]
  - HEART RATE INCREASED [None]
  - HEART RATE IRREGULAR [None]
  - HUMERUS FRACTURE [None]
  - MYOCARDIAL INFARCTION [None]
  - PULSE ABSENT [None]
  - SPEECH DISORDER [None]
